FAERS Safety Report 19903913 (Version 1)
Quarter: 2021Q4

REPORT INFORMATION
  Report Type: Report from Study
  Country: IT (occurrence: IT)
  Receive Date: 20211001
  Receipt Date: 20211001
  Transmission Date: 20220303
  Serious: Yes (Other)
  Sender: FDA-Public Use
  Company Number: IT-VIIV HEALTHCARE ULC-IT2021EME202790

PATIENT
  Age: 30 Year
  Sex: Male

DRUGS (3)
  1. DOLUTEGRAVIR [Suspect]
     Active Substance: DOLUTEGRAVIR
     Indication: HIV infection
     Dosage: UNK
     Dates: start: 20200601
  2. COMBIVIR [Suspect]
     Active Substance: LAMIVUDINE\ZIDOVUDINE
     Indication: HIV infection
     Dosage: UNK
     Dates: start: 20200601
  3. SYMTUZA [Suspect]
     Active Substance: COBICISTAT\DARUNAVIR\EMTRICITABINE\TENOFOVIR ALAFENAMIDE
     Indication: HIV infection
     Dosage: UNK
     Dates: start: 20200601

REACTIONS (3)
  - Pathogen resistance [Unknown]
  - Viral mutation identified [Unknown]
  - Treatment noncompliance [Unknown]

NARRATIVE: CASE EVENT DATE: 20210601
